FAERS Safety Report 22022911 (Version 2)
Quarter: 2023Q1

REPORT INFORMATION
  Report Type: Spontaneous
  Country: US (occurrence: US)
  Receive Date: 20230222
  Receipt Date: 20230329
  Transmission Date: 20230417
  Serious: Yes (Life-Threatening, Hospitalization)
  Sender: FDA-Public Use
  Company Number: US-JNJFOC-20230233862

PATIENT
  Age: 53 Year
  Sex: Male

DRUGS (9)
  1. TREMFYA [Suspect]
     Active Substance: GUSELKUMAB
     Indication: Psoriasis
     Route: 058
     Dates: start: 20220718, end: 20221020
  2. OMEPRAZOLE [Concomitant]
     Active Substance: OMEPRAZOLE
     Dosage: PO DAILY
  3. FENOFIBRATE [Concomitant]
     Active Substance: FENOFIBRATE
     Dosage: PO
  4. ANASTROZOLE [Concomitant]
     Active Substance: ANASTROZOLE
     Dosage: PO
  5. AVEED [Concomitant]
     Active Substance: TESTOSTERONE UNDECANOATE
  6. CETIRIZINE HYDROCHLORIDE [Concomitant]
     Active Substance: CETIRIZINE HYDROCHLORIDE
     Dosage: PO DAILY
  7. ASPIRIN [Concomitant]
     Active Substance: ASPIRIN
     Dosage: PO DAILY
  8. FISH OIL [Concomitant]
     Active Substance: FISH OIL
  9. LISINOPRIL [Concomitant]
     Active Substance: LISINOPRIL
     Dosage: 10/12.5MG

REACTIONS (1)
  - Thrombocytopenia [Recovered/Resolved]

NARRATIVE: CASE EVENT DATE: 20221201
